FAERS Safety Report 20958374 (Version 1)
Quarter: 2022Q2

REPORT INFORMATION
  Report Type: Report from Study
  Country: KR (occurrence: KR)
  Receive Date: 20220614
  Receipt Date: 20220614
  Transmission Date: 20220721
  Serious: Yes (Other)
  Sender: FDA-Public Use
  Company Number: KR-TAKEDA-2022TUS037837

PATIENT
  Sex: Male

DRUGS (22)
  1. BRIGATINIB [Suspect]
     Active Substance: BRIGATINIB
     Indication: Non-small cell lung cancer
     Dosage: 90 MILLIGRAM, QD
     Route: 065
     Dates: start: 20201217, end: 20201222
  2. BRIGATINIB [Suspect]
     Active Substance: BRIGATINIB
     Dosage: 180 MILLIGRAM, QD
     Route: 065
     Dates: start: 20201223, end: 20210527
  3. PREDNISOLONE [Concomitant]
     Active Substance: PREDNISOLONE
     Indication: Chronic gastritis
     Dosage: UNK
     Route: 048
     Dates: start: 20201216
  4. UMCKAMIN [Concomitant]
     Indication: Bronchitis chronic
     Dosage: UNK
     Route: 048
     Dates: start: 20201216
  5. THEOBROMINE [Concomitant]
     Active Substance: THEOBROMINE
     Indication: Rhinitis allergic
     Dosage: 600 MILLIGRAM
     Route: 048
     Dates: start: 20201216
  6. LANSOPRAZOLE [Concomitant]
     Active Substance: LANSOPRAZOLE
     Indication: Chronic gastritis
     Dosage: 15 MILLIGRAM
     Route: 048
     Dates: start: 20201216
  7. SYNATURA [Concomitant]
     Indication: Bronchitis chronic
     Dosage: UNK
     Route: 048
     Dates: start: 20201216
  8. AZELASTINE HYDROCHLORIDE [Concomitant]
     Active Substance: AZELASTINE HYDROCHLORIDE
     Indication: Rhinitis allergic
     Dosage: 2 MILLIGRAM
     Route: 048
     Dates: start: 20210508
  9. FEROBA YOU [Concomitant]
     Indication: Anaemia
     Dosage: UNK
     Route: 048
     Dates: start: 20201216
  10. ACETYLCYSTEINE [Concomitant]
     Active Substance: ACETYLCYSTEINE
     Indication: Bronchitis chronic
     Dosage: 400 MILLIGRAM
     Route: 048
     Dates: start: 20201223
  11. URSODIOL [Concomitant]
     Active Substance: URSODIOL
     Indication: Aspartate aminotransferase increased
     Dosage: 200 MILLIGRAM
     Route: 048
     Dates: start: 20210120
  12. Acelex [Concomitant]
     Indication: Arthritis bacterial
     Dosage: 2 MILLIGRAM
     Route: 048
     Dates: start: 20210304, end: 20210429
  13. Acelex [Concomitant]
     Dosage: 2 MILLIGRAM
     Route: 048
     Dates: start: 20210430
  14. JOINS [Concomitant]
     Indication: Arthritis bacterial
     Dosage: 400 MILLIGRAM
     Route: 048
     Dates: start: 20210304, end: 20210429
  15. STILLEN [Concomitant]
     Indication: Chronic gastritis
     Dosage: UNK
     Route: 048
     Dates: start: 20210304, end: 20210502
  16. NALOXONE HYDROCHLORIDE\OXYCODONE HYDROCHLORIDE [Concomitant]
     Active Substance: NALOXONE HYDROCHLORIDE\OXYCODONE HYDROCHLORIDE
     Indication: Cancer pain
     Dosage: UNK
     Route: 048
     Dates: start: 20210120, end: 20210511
  17. RAMNOS [Concomitant]
     Indication: Diarrhoea
     Dosage: 750 MILLIGRAM
     Route: 048
     Dates: start: 20210330, end: 20210524
  18. SHUMACTON [Concomitant]
     Indication: Diarrhoea
     Dosage: UNK
     Route: 048
     Dates: start: 20210330, end: 20210419
  19. HERBALS [Concomitant]
     Active Substance: HERBALS
     Indication: Chronic gastritis
     Dosage: UNK
     Route: 048
     Dates: start: 20201216, end: 20210511
  20. RUPAFIN [Concomitant]
     Active Substance: RUPATADINE FUMARATE
     Indication: Rhinitis allergic
     Dosage: UNK
     Route: 048
     Dates: start: 20201223, end: 20210511
  21. LASIX [Concomitant]
     Active Substance: FUROSEMIDE
     Indication: Oedema peripheral
     Dosage: UNK
     Route: 048
     Dates: start: 20210317
  22. LASIX [Concomitant]
     Active Substance: FUROSEMIDE
     Indication: Face oedema

REACTIONS (1)
  - Infectious pleural effusion [Recovered/Resolved]

NARRATIVE: CASE EVENT DATE: 20210506
